FAERS Safety Report 10672742 (Version 2)
Quarter: 2015Q3

REPORT INFORMATION
  Report Type: Spontaneous
  Country: DE (occurrence: DE)
  Receive Date: 20141223
  Receipt Date: 20150818
  Transmission Date: 20151125
  Serious: Yes (Hospitalization)
  Sender: FDA-Public Use
  Company Number: DE-PFIZER INC-2014353599

PATIENT
  Age: 27 Year
  Sex: Female

DRUGS (26)
  1. NEUROCIL [Interacting]
     Active Substance: LEVOMEPROMAZINE HYDROCHLORIDE\LEVOMEPROMAZINE MALEATE
     Dosage: 75-25 MG (TAPERING DOWN), 1X/DAY
     Route: 048
     Dates: start: 20120709, end: 20120729
  2. SEROQUEL [Interacting]
     Active Substance: QUETIAPINE FUMARATE
     Dosage: 200 MG, 1X/DAY
     Route: 048
     Dates: start: 20120621, end: 20120624
  3. SEROQUEL [Interacting]
     Active Substance: QUETIAPINE FUMARATE
     Dosage: 400 MG, 1X/DAY
     Route: 048
     Dates: start: 20120628, end: 20120722
  4. SEROQUEL [Interacting]
     Active Substance: QUETIAPINE FUMARATE
     Dosage: 300 MG, 1X/DAY
     Route: 048
     Dates: start: 20120807, end: 20120809
  5. ABILIFY [Concomitant]
     Active Substance: ARIPIPRAZOLE
     Dosage: 15 MG, 1X/DAY
     Route: 048
     Dates: start: 20120910
  6. NEUROCIL [Interacting]
     Active Substance: LEVOMEPROMAZINE HYDROCHLORIDE\LEVOMEPROMAZINE MALEATE
     Dosage: 125-100 MG (TAPERING DOWN), 1X/DAY
     Route: 048
     Dates: start: 20120626, end: 20120708
  7. ABILIFY [Concomitant]
     Active Substance: ARIPIPRAZOLE
     Dosage: 15 MG, 1X/DAY
     Route: 048
     Dates: start: 20120814
  8. PANTOZOL [Concomitant]
     Active Substance: PANTOPRAZOLE SODIUM
     Dosage: 20 MG, 1X/DAY
     Route: 048
     Dates: start: 20120612
  9. NEUROCIL [Interacting]
     Active Substance: LEVOMEPROMAZINE HYDROCHLORIDE\LEVOMEPROMAZINE MALEATE
     Dosage: 150 MG, 1X/DAY
     Route: 048
     Dates: start: 20120618, end: 20120625
  10. SEROQUEL [Interacting]
     Active Substance: QUETIAPINE FUMARATE
     Dosage: 100 MG, 1X/DAY
     Route: 048
     Dates: start: 20120813, end: 20120814
  11. SEROQUEL [Interacting]
     Active Substance: QUETIAPINE FUMARATE
     Dosage: 50-100 MG/DAY
     Route: 048
     Dates: start: 20120618, end: 20120620
  12. SEROQUEL [Interacting]
     Active Substance: QUETIAPINE FUMARATE
     Dosage: 200 MG, 1X/DAY
     Route: 048
     Dates: start: 20120810, end: 20120812
  13. ABILIFY [Concomitant]
     Active Substance: ARIPIPRAZOLE
     Dosage: 7.5 MG, 1X/DAY
     Route: 048
     Dates: start: 20120807, end: 20120809
  14. TREVILOR RETARD [Suspect]
     Active Substance: VENLAFAXINE HYDROCHLORIDE
     Dosage: 225 MG, 1X/DAY
     Route: 048
  15. DIPIPERON [Concomitant]
     Active Substance: PIPAMPERONE
     Dosage: 20 MG, 1X/DAY
     Route: 048
     Dates: start: 20120628, end: 20120629
  16. SEROQUEL [Interacting]
     Active Substance: QUETIAPINE FUMARATE
     Dosage: 500 MG, 1X/DAY
     Route: 048
     Dates: start: 20120723, end: 20120802
  17. MARCUMAR [Concomitant]
     Active Substance: PHENPROCOUMON
     Dosage: ^1/4 TO 1/2 A TABLET^
     Route: 048
     Dates: start: 201206
  18. TOPIRAMAT CT [Concomitant]
     Dosage: 25 MG, 1X/DAY
     Route: 048
     Dates: start: 20120616, end: 20120622
  19. SEROQUEL [Interacting]
     Active Substance: QUETIAPINE FUMARATE
     Dosage: 300 MG, 1X/DAY
     Route: 048
     Dates: start: 20120625, end: 20120627
  20. SEROQUEL [Interacting]
     Active Substance: QUETIAPINE FUMARATE
     Dosage: 400 MG, 1X/DAY
     Route: 048
     Dates: start: 20120803, end: 20120806
  21. ABILIFY [Concomitant]
     Active Substance: ARIPIPRAZOLE
     Dosage: 2.5 MG, 1X/DAY
     Route: 048
     Dates: start: 20120731, end: 20120802
  22. ABILIFY [Concomitant]
     Active Substance: ARIPIPRAZOLE
     Dosage: 5 MG, 1X/DAY
     Route: 048
     Dates: start: 20120803, end: 20120806
  23. ABILIFY [Concomitant]
     Active Substance: ARIPIPRAZOLE
     Dosage: 10 MG, 1X/DAY
     Route: 048
     Dates: start: 20120810, end: 20120813
  24. NEUROCIL [Interacting]
     Active Substance: LEVOMEPROMAZINE HYDROCHLORIDE\LEVOMEPROMAZINE MALEATE
     Dosage: 200 MG, 1X/DAY
     Route: 048
     Dates: start: 20120617, end: 20120617
  25. DIPIPERON [Concomitant]
     Active Substance: PIPAMPERONE
     Dosage: 40 MG, 1X/DAY
     Route: 048
     Dates: start: 20120612, end: 20120627
  26. TOPIRAMAT CT [Concomitant]
     Dosage: 50 MG, 1X/DAY
     Route: 048
     Dates: start: 20120623

REACTIONS (2)
  - Drug interaction [Recovered/Resolved]
  - Weight increased [Recovered/Resolved]

NARRATIVE: CASE EVENT DATE: 201206
